FAERS Safety Report 23646657 (Version 1)
Quarter: 2024Q1

REPORT INFORMATION
  Report Type: Spontaneous
  Country: US (occurrence: US)
  Receive Date: 20240319
  Receipt Date: 20240319
  Transmission Date: 20240409
  Serious: Yes (Other)
  Sender: FDA-Public Use
  Company Number: US-CADILA HEALTHCARE LIMITED-US-ZYDUS-104160

PATIENT

DRUGS (1)
  1. METHOTREXATE [Suspect]
     Active Substance: METHOTREXATE
     Indication: Central nervous system lymphoma
     Dosage: UNK
     Route: 065

REACTIONS (10)
  - Metabolic acidosis [Unknown]
  - Shock [Unknown]
  - Pancytopenia [Not Recovered/Not Resolved]
  - Hyponatraemia [Unknown]
  - Sepsis [Unknown]
  - Acute respiratory distress syndrome [Unknown]
  - Haemoptysis [Unknown]
  - Toxicity to various agents [Unknown]
  - Rash [Unknown]
  - Acute kidney injury [Recovering/Resolving]
